FAERS Safety Report 19469567 (Version 1)
Quarter: 2021Q2

REPORT INFORMATION
  Report Type: Spontaneous
  Country: US (occurrence: US)
  Receive Date: 20210629
  Receipt Date: 20210629
  Transmission Date: 20210717
  Serious: Yes (Other)
  Sender: FDA-Public Use
  Company Number: US-CIPLA LTD.-2021US04405

PATIENT

DRUGS (5)
  1. RALTEGRAVIR. [Suspect]
     Active Substance: RALTEGRAVIR
     Indication: ANTIRETROVIRAL THERAPY
     Dosage: FIRST COURSE, 1 (UNIT UNKNOWN) DAILY DOSE FROM 9 WEEKS
     Route: 048
  2. ABACAVIR SULFATE;DOLUTEGRAVIR;LAMIVUDINE [Suspect]
     Active Substance: ABACAVIR SULFATE\DOLUTEGRAVIR SODIUM\LAMIVUDINE
     Indication: ANTIRETROVIRAL THERAPY
     Dosage: FIRST COURSE, SINGLE TOTAL DOSE FROM 0 TO 9 WEEKS
     Route: 048
  3. ZIDOVUDINE. [Suspect]
     Active Substance: ZIDOVUDINE
     Indication: ANTIRETROVIRAL THERAPY
     Dosage: FIRST COURSE, 2 (UNIT UNKNOWN) DAILY DOSE
     Route: 042
  4. ABACAVIR/LAMIVUDINE [Suspect]
     Active Substance: ABACAVIR\LAMIVUDINE
     Indication: ANTIRETROVIRAL THERAPY
     Dosage: FIRST COURSE, SINGLE TOTAL DOSE FROM 9 WEEKS
     Route: 048
  5. ZIDOVUDINE. [Suspect]
     Active Substance: ZIDOVUDINE
     Dosage: SECOND COURSE, 1 (UNIT UNKNOWN) DAILY DOSE
     Route: 042

REACTIONS (2)
  - Premature delivery [Unknown]
  - Exposure during pregnancy [Unknown]
